FAERS Safety Report 10685818 (Version 1)
Quarter: 2014Q4

REPORT INFORMATION
  Report Type: Spontaneous
  Country: FR (occurrence: FR)
  Receive Date: 20141231
  Receipt Date: 20141231
  Transmission Date: 20150529
  Serious: Yes (Death, Hospitalization, Other)
  Sender: FDA-Public Use
  Company Number: FR-PFIZER INC-2014359942

PATIENT
  Age: 81 Year
  Sex: Female

DRUGS (12)
  1. CEFPODOXIME [Concomitant]
     Active Substance: CEFPODOXIME
     Indication: SUPERINFECTION
     Dosage: UNK
     Dates: start: 201403
  2. VENTOLINE [Concomitant]
     Active Substance: ALBUTEROL
     Dosage: UNK, AS NEEDED
  3. ZITHROMAX [Suspect]
     Active Substance: AZITHROMYCIN DIHYDRATE
     Indication: BRONCHIECTASIS
     Dosage: 250 MG, 3 TIMES WEEKLY
     Route: 048
     Dates: start: 201307, end: 20140516
  4. INEXIUM [Concomitant]
     Active Substance: ESOMEPRAZOLE
     Dosage: UNK
  5. PRAVASTATIN [Concomitant]
     Active Substance: PRAVASTATIN\PRAVASTATIN SODIUM
     Dosage: UNK
  6. AUGMENTIN [Concomitant]
     Active Substance: AMOXICILLIN\CLAVULANATE POTASSIUM
     Indication: SUPERINFECTION
     Dosage: UNK
     Dates: start: 20140505
  7. LASILIX [Concomitant]
     Active Substance: FUROSEMIDE
     Indication: ORTHOPNOEA
     Dosage: UNK
  8. LORAZEPAM. [Concomitant]
     Active Substance: LORAZEPAM
     Dosage: UNK
  9. APROVEL [Concomitant]
     Active Substance: IRBESARTAN
     Dosage: UNK
  10. PAROXETINE ARROW [Suspect]
     Active Substance: PAROXETINE\PAROXETINE HYDROCHLORIDE
     Dosage: 20 MG, 1X/DAY
     Dates: start: 2013, end: 20140516
  11. CHONDROSULF [Concomitant]
     Active Substance: CHONDROITIN SULFATE (CHICKEN)
     Dosage: UNK
  12. HAMAMELIS [Concomitant]
     Dosage: UNK

REACTIONS (2)
  - Cardiac arrest [Fatal]
  - Cardio-respiratory arrest [Fatal]

NARRATIVE: CASE EVENT DATE: 20140516
